FAERS Safety Report 9494628 (Version 1)
Quarter: 2013Q3

REPORT INFORMATION
  Report Type: Spontaneous
  Country: US (occurrence: None)
  Receive Date: 20130830
  Receipt Date: 20130830
  Transmission Date: 20140515
  Serious: Yes (Other)
  Sender: FDA-Public Use
  Company Number: None

PATIENT
  Age: 17 Year
  Sex: Male
  Weight: 57.15 kg

DRUGS (2)
  1. ZYRTEC [Suspect]
     Indication: SEASONAL ALLERGY
     Dosage: 1 PILL A DAY  ONCE  MOUTH
     Route: 048
     Dates: start: 20130330, end: 20130808
  2. ONE A DAY - MENS HEALTH [Concomitant]

REACTIONS (3)
  - Pruritus [None]
  - Urticaria [None]
  - Pain in extremity [None]
